FAERS Safety Report 7413634-7 (Version None)
Quarter: 2011Q2

REPORT INFORMATION
  Report Type: 
  Country: None (occurrence: None)
  Receive Date: 20110413
  Receipt Date: 20110407
  Transmission Date: 20111010
  Serious: Yes (Hospitalization)
  Sender: FDA-Public Use
  Company Number: PHHO2011GB06305

PATIENT

DRUGS (10)
  1. AFINITOR [Suspect]
     Indication: PANCREATIC NEUROENDOCRINE TUMOUR METASTATIC
     Dosage: UNK
     Route: 048
     Dates: start: 20110324
  2. ACETAMINOPHEN AND CODEINE PHOSPHATE [Concomitant]
  3. MOVIPREP [Concomitant]
  4. PREDNISOLONE [Concomitant]
  5. PROPRANOLOL [Concomitant]
  6. OMEPRAZOLE [Concomitant]
  7. TRANEXAMIC ACID [Concomitant]
  8. CREON [Concomitant]
  9. BUSCOPAN [Concomitant]
  10. AMITRIPTYLINE [Concomitant]

REACTIONS (1)
  - CONFUSIONAL STATE [None]
